FAERS Safety Report 7789531-4 (Version None)
Quarter: 2011Q3

REPORT INFORMATION
  Report Type: 
  Country: None (occurrence: None)
  Receive Date: 20110930
  Receipt Date: 20110926
  Transmission Date: 20111222
  Serious: Yes (Hospitalization, Other)
  Sender: FDA-Public Use
  Company Number: NL-ABBOTT-11P-114-0846471-00

PATIENT
  Sex: Male
  Weight: 74.5 kg

DRUGS (3)
  1. HUMIRA [Suspect]
     Indication: CROHN'S DISEASE
     Route: 058
  2. PREDNISOLONE [Suspect]
     Indication: CROHN'S DISEASE
     Route: 048
     Dates: start: 19910101
  3. HUMIRA [Suspect]
     Route: 058

REACTIONS (8)
  - INSOMNIA [None]
  - DEPRESSION [None]
  - ALOPECIA [None]
  - ANXIETY [None]
  - SUICIDAL IDEATION [None]
  - ARTHRALGIA [None]
  - RESTLESSNESS [None]
  - DRUG INEFFECTIVE [None]
